FAERS Safety Report 16773261 (Version 3)
Quarter: 2019Q4

REPORT INFORMATION
  Report Type: Report from Study
  Country: US (occurrence: US)
  Receive Date: 20190904
  Receipt Date: 20191104
  Transmission Date: 20200122
  Serious: Yes (Hospitalization, Other)
  Sender: FDA-Public Use
  Company Number: US-GILEAD-2019-0426544

PATIENT
  Age: 41 Year
  Sex: Male

DRUGS (4)
  1. AMBRISENTAN [Suspect]
     Active Substance: AMBRISENTAN
     Indication: PULMONARY HYPERTENSION
     Dosage: 10 MG, QD
     Route: 065
     Dates: start: 20110809
  2. ADEMPAS [Concomitant]
     Active Substance: RIOCIGUAT
  3. TYLENOL COLD MAX [Concomitant]
  4. UPTRAVI [Concomitant]
     Active Substance: SELEXIPAG

REACTIONS (3)
  - Sickle cell anaemia with crisis [Recovered/Resolved]
  - Product use issue [Not Recovered/Not Resolved]
  - Sickle cell anaemia [Unknown]

NARRATIVE: CASE EVENT DATE: 201908
